FAERS Safety Report 13561713 (Version 4)
Quarter: 2017Q3

REPORT INFORMATION
  Report Type: Spontaneous
  Country: US (occurrence: US)
  Receive Date: 20170518
  Receipt Date: 20170727
  Transmission Date: 20171127
  Serious: No
  Sender: FDA-Public Use
  Company Number: US-BIOGEN-2017BI00400828

PATIENT
  Age: 63 Year
  Sex: Female

DRUGS (3)
  1. AVONEX [Suspect]
     Active Substance: INTERFERON BETA-1A
     Route: 065
     Dates: end: 2017
  2. AVONEX [Suspect]
     Active Substance: INTERFERON BETA-1A
     Indication: MULTIPLE SCLEROSIS
     Route: 065
     Dates: start: 19970519, end: 20120314
  3. AVONEX [Suspect]
     Active Substance: INTERFERON BETA-1A
     Route: 065
     Dates: start: 20121212

REACTIONS (10)
  - Drug dose omission [Unknown]
  - Gait disturbance [Not Recovered/Not Resolved]
  - Knee operation [Recovered/Resolved]
  - Musculoskeletal disorder [Not Recovered/Not Resolved]
  - Memory impairment [Unknown]
  - Fall [Recovered/Resolved]
  - Asthenia [Not Recovered/Not Resolved]
  - Visual impairment [Unknown]
  - Paraesthesia [Not Recovered/Not Resolved]
  - Urinary incontinence [Not Recovered/Not Resolved]

NARRATIVE: CASE EVENT DATE: 201701
